FAERS Safety Report 10384595 (Version 1)
Quarter: 2014Q3

REPORT INFORMATION
  Report Type: Spontaneous
  Country: US (occurrence: None)
  Receive Date: 20140813
  Receipt Date: 20140813
  Transmission Date: 20150326
  Serious: Yes (Disabling)
  Sender: FDA-Public Use
  Company Number: None

PATIENT
  Age: 87 Year
  Sex: Female
  Weight: 52.16 kg

DRUGS (10)
  1. LOSARTAN [Concomitant]
     Active Substance: LOSARTAN
  2. LEVOFLOXACIN [Suspect]
     Active Substance: LEVOFLOXACIN
     Indication: SINUSITIS
     Dosage: 1 TABLET  ONCE DAILY FOR 14 DAYS  BY MOUTH
     Route: 048
     Dates: start: 20120111
  3. TRIAMTERENE. [Concomitant]
     Active Substance: TRIAMTERENE
  4. PREDNISONE. [Concomitant]
     Active Substance: PREDNISONE
  5. LEVOTHYROXIN [Concomitant]
     Active Substance: LEVOTHYROXINE
  6. NASONEX [Concomitant]
     Active Substance: MOMETASONE FUROATE
  7. POTASSIUM [Concomitant]
     Active Substance: POTASSIUM
  8. VITAMIN D [Concomitant]
     Active Substance: CHOLECALCIFEROL
  9. ADVIL [Suspect]
     Active Substance: IBUPROFEN
  10. PREMARIN [Concomitant]
     Active Substance: ESTROGENS, CONJUGATED

REACTIONS (4)
  - Tendon rupture [None]
  - Muscular weakness [None]
  - Haematoma [None]
  - Pain in extremity [None]
